FAERS Safety Report 20156344 (Version 2)
Quarter: 2021Q4

REPORT INFORMATION
  Report Type: Spontaneous
  Country: US (occurrence: US)
  Receive Date: 20211207
  Receipt Date: 20211210
  Transmission Date: 20220304
  Serious: Yes (Death, Other)
  Sender: FDA-Public Use
  Company Number: US-PFIZER INC-202101658391

PATIENT
  Age: 65 Year
  Sex: Male

DRUGS (4)
  1. HEPARIN SODIUM [Suspect]
     Active Substance: HEPARIN SODIUM
     Indication: Deep vein thrombosis
     Dosage: UNK
  2. HEPARIN SODIUM [Suspect]
     Active Substance: HEPARIN SODIUM
     Indication: Platelet count increased
  3. DEXAMETHASONE [Concomitant]
     Active Substance: DEXAMETHASONE
     Indication: Immune thrombocytopenia
     Dosage: 40 MG
     Route: 042
  4. HUMAN IMMUNOGLOBULIN G [Concomitant]
     Active Substance: HUMAN IMMUNOGLOBULIN G
     Indication: Immune thrombocytopenia
     Dosage: UNK
     Route: 042

REACTIONS (3)
  - Haematoma [Fatal]
  - Heparin-induced thrombocytopenia [Fatal]
  - Encephalopathy [Fatal]
